FAERS Safety Report 7607407-X (Version None)
Quarter: 2011Q3

REPORT INFORMATION
  Report Type: 
  Country: None (occurrence: None)
  Receive Date: 20110713
  Receipt Date: 20110630
  Transmission Date: 20111222
  Serious: Yes (Other)
  Sender: FDA-Public Use
  Company Number: US-MYLANLABS-2011S1013927

PATIENT
  Age: 62 Year
  Sex: Male

DRUGS (9)
  1. OMEPRAZOLE [Concomitant]
     Route: 065
  2. COLCHICINE [Interacting]
     Indication: GOUT
     Route: 065
  3. TACROLIMUS [Suspect]
     Indication: IMMUNOSUPPRESSION
     Route: 065
  4. MYCOPHENOLATE MEFETIL [Concomitant]
     Route: 065
  5. VARDENAFIL HYDROCHLORIDE (LEVITRA) [Concomitant]
     Route: 065
  6. ALLOPURINOL [Concomitant]
     Route: 065
  7. ATENOLOL [Concomitant]
     Route: 065
  8. LOSARTAN POTASSIUM [Concomitant]
     Route: 065
  9. NIFEDIPINE [Concomitant]
     Route: 065

REACTIONS (2)
  - MYOPATHY [None]
  - DRUG INTERACTION [None]
